FAERS Safety Report 20445067 (Version 1)
Quarter: 2022Q1

REPORT INFORMATION
  Report Type: Spontaneous
  Country: US (occurrence: US)
  Receive Date: 20220208
  Receipt Date: 20220208
  Transmission Date: 20220423
  Serious: Yes (Hospitalization, Other)
  Sender: FDA-Public Use
  Company Number: US-MLMSERVICE-20220120-3327838-1

PATIENT
  Age: 24 Year
  Sex: Female

DRUGS (2)
  1. TRIAMCINOLONE ACETONIDE [Suspect]
     Active Substance: TRIAMCINOLONE ACETONIDE
     Indication: Keloid scar
     Dosage: 0.5 AND 0.7 ML OF INTRALESIONAL TRIAMCINOLONE AT 40 MG/ML FOR A TOTAL OF 2 INJECTIONS, WITH 2 MONTHS
     Route: 026
  2. TRIAMCINOLONE ACETONIDE [Suspect]
     Active Substance: TRIAMCINOLONE ACETONIDE
     Dosage: 0.5 AND 0.7 ML OF INTRALESIONAL TRIAMCINOLONE AT 40 MG/ML FOR A TOTAL OF 2 INJECTIONS, WITH 2 MONTHS
     Route: 026

REACTIONS (3)
  - Skin atrophy [Recovered/Resolved]
  - Injection site discolouration [Recovered/Resolved]
  - Intentional product use issue [Unknown]
